FAERS Safety Report 13669232 (Version 1)
Quarter: 2017Q2

REPORT INFORMATION
  Report Type: Spontaneous
  Country: US (occurrence: US)
  Receive Date: 20170620
  Receipt Date: 20170620
  Transmission Date: 20170830
  Serious: Yes (Other)
  Sender: FDA-Public Use
  Company Number: US-PFIZER INC-2017267618

PATIENT
  Sex: Male
  Weight: 124.7 kg

DRUGS (2)
  1. EMERGEN-C [Concomitant]
     Active Substance: VITAMINS
     Indication: ELECTROLYTE SUBSTITUTION THERAPY
     Dosage: TAKES 3 PACKETS A DAY, ONCE IN AM, ONCE IN AFTERNOON, ONCE IN PM
     Dates: start: 1980
  2. ADVIL [Suspect]
     Active Substance: IBUPROFEN
     Dosage: 2400 MG, DAILY

REACTIONS (2)
  - Haemorrhage [Unknown]
  - Overdose [Unknown]
